FAERS Safety Report 22218432 (Version 1)
Quarter: 2023Q2

REPORT INFORMATION
  Report Type: Spontaneous
  Country: US (occurrence: None)
  Receive Date: 20230414
  Receipt Date: 20230414
  Transmission Date: 20230722
  Serious: Yes (Other)
  Sender: FDA-Public Use
  Company Number: None

PATIENT
  Age: 41 Year
  Sex: Male
  Weight: 87.75 kg

DRUGS (1)
  1. CLOZAPINE [Suspect]
     Active Substance: CLOZAPINE
     Indication: Sleep terror
     Dosage: OTHER QUANTITY : 2 TABLET(S);?FREQUENCY : AT BEDTIME;?
     Route: 048

REACTIONS (4)
  - Product substitution issue [None]
  - Therapeutic response changed [None]
  - Sleep deficit [None]
  - Drug intolerance [None]
